FAERS Safety Report 16091550 (Version 2)
Quarter: 2019Q1

REPORT INFORMATION
  Report Type: Spontaneous
  Country: JP (occurrence: JP)
  Receive Date: 20190319
  Receipt Date: 20190325
  Transmission Date: 20190418
  Serious: Yes (Other)
  Sender: FDA-Public Use
  Company Number: JP-JNJFOC-20190233814

PATIENT
  Age: 8 Decade
  Sex: Male

DRUGS (3)
  1. TRAMADOL HYDROCHLORIDE AND ACETAMINOPHEN [Suspect]
     Active Substance: ACETAMINOPHEN\TRAMADOL HYDROCHLORIDE
     Indication: PAIN
     Dosage: 2 IN THE MORNING, 1 IN NOON, 2 IN THE EVENG
     Route: 048
  2. TRAMADOL HYDROCHLORIDE AND ACETAMINOPHEN [Suspect]
     Active Substance: ACETAMINOPHEN\TRAMADOL HYDROCHLORIDE
     Indication: PAIN
     Dosage: 1 TABLET IN THE MORNING AND AT NOON AND 2 TABLETS IN EVENG
     Route: 048
  3. LYRICA [Concomitant]
     Active Substance: PREGABALIN
     Indication: PAIN
     Route: 048

REACTIONS (9)
  - Somnolence [Unknown]
  - Paraesthesia [Unknown]
  - Dizziness [Unknown]
  - Thirst [Unknown]
  - Middle insomnia [Unknown]
  - Feeling abnormal [Unknown]
  - Malaise [Unknown]
  - Colitis ulcerative [Unknown]
  - Urinary incontinence [Unknown]

NARRATIVE: CASE EVENT DATE: 2019
